FAERS Safety Report 6035647-2 (Version None)
Quarter: 2009Q1

REPORT INFORMATION
  Report Type: 
  Country: None (occurrence: None)
  Receive Date: 20090113
  Receipt Date: 20090106
  Transmission Date: 20090719
  Serious: Yes (Other)
  Sender: FDA-Public Use
  Company Number: PHEH2008US11290

PATIENT
  Sex: Female

DRUGS (2)
  1. TEKTURNA [Suspect]
     Dosage: 150 MG, QD
     Dates: start: 20081217, end: 20081219
  2. TOPROL-XL [Concomitant]
     Dosage: 50 MG, QD

REACTIONS (6)
  - BLOOD PRESSURE INCREASED [None]
  - CONFUSIONAL STATE [None]
  - FEELING ABNORMAL [None]
  - IRRITABILITY [None]
  - MUSCLE TIGHTNESS [None]
  - SENSATION OF PRESSURE [None]
